FAERS Safety Report 4689162-9 (Version None)
Quarter: 2005Q2

REPORT INFORMATION
  Report Type: 
  Country: None (occurrence: None)
  Receive Date: 20050613
  Receipt Date: 20050414
  Transmission Date: 20051028
  Serious: Yes (Hospitalization, Other)
  Sender: FDA-Public Use
  Company Number: 2005UW05775

PATIENT
  Age: 75 Year
  Sex: Male
  Weight: 67.1 kg

DRUGS (11)
  1. SEROQUEL [Suspect]
     Indication: DEMENTIA ALZHEIMER'S TYPE
     Dosage: TITRATED TO 300 MG IN THE EVENING, 200 MG IN THE MORNING AND 100 MG AT NOON
     Route: 048
     Dates: start: 20000901, end: 20010801
  2. SEROQUEL [Suspect]
     Indication: AGITATION
     Dosage: TITRATED TO 300 MG IN THE EVENING, 200 MG IN THE MORNING AND 100 MG AT NOON
     Route: 048
     Dates: start: 20000901, end: 20010801
  3. SEROQUEL [Suspect]
     Dosage: TITRATED DOWN
     Route: 048
     Dates: start: 20010801, end: 20010901
  4. SEROQUEL [Suspect]
     Dosage: TITRATED DOWN
     Route: 048
     Dates: start: 20010801, end: 20010901
  5. SEROQUEL [Suspect]
     Dosage: TITRATED UP
     Route: 048
     Dates: start: 20010101
  6. SEROQUEL [Suspect]
     Dosage: TITRATED UP
     Route: 048
     Dates: start: 20010101
  7. SEROQUEL [Suspect]
     Dosage: TITRATED DOWN
     Route: 048
  8. SEROQUEL [Suspect]
     Dosage: TITRATED DOWN
     Route: 048
  9. VITAMINS [Concomitant]
  10. STOOL SOFTENER [Concomitant]
  11. PRILOSEC [Concomitant]
     Route: 048

REACTIONS (4)
  - ABASIA [None]
  - AGGRESSION [None]
  - AGITATION [None]
  - TARDIVE DYSKINESIA [None]
